FAERS Safety Report 7238622-5 (Version None)
Quarter: 2011Q1

REPORT INFORMATION
  Report Type: 
  Country: None (occurrence: None)
  Receive Date: 20110121
  Receipt Date: 20110119
  Transmission Date: 20110831
  Serious: Yes (Death, Disabling, Other)
  Sender: FDA-Public Use
  Company Number: US-TEVA-264018USA

PATIENT
  Sex: Male

DRUGS (2)
  1. METOCLOPRAMIDE [Suspect]
  2. METOCLOPRAMIDE [Suspect]

REACTIONS (10)
  - DEPRESSION SUICIDAL [None]
  - DYSTONIA [None]
  - EXTRAPYRAMIDAL DISORDER [None]
  - NERVOUS SYSTEM DISORDER [None]
  - METABOLIC DISORDER [None]
  - OVERDOSE [None]
  - VISUAL IMPAIRMENT [None]
  - TARDIVE DYSKINESIA [None]
  - AKATHISIA [None]
  - MOVEMENT DISORDER [None]
